FAERS Safety Report 7687148-3 (Version None)
Quarter: 2011Q3

REPORT INFORMATION
  Report Type: 
  Country: None (occurrence: None)
  Receive Date: 20110816
  Receipt Date: 20110811
  Transmission Date: 20111222
  Serious: Yes (Other)
  Sender: FDA-Public Use
  Company Number: PHEH2011US00571

PATIENT
  Sex: Female
  Weight: 54.3 kg

DRUGS (5)
  1. RECLAST [Suspect]
     Indication: OSTEOPOROSIS
     Dosage: 5 MG, UNK (1 PER YEAR)
     Route: 042
     Dates: start: 20110524
  2. CALCIUM CITRATE [Concomitant]
     Dosage: 1000 MG, UNK
  3. IBUPROFEN [Concomitant]
     Indication: INFLAMMATION
     Dosage: 200 MG, UNK
  4. OCUPRESS [Concomitant]
     Indication: GLAUCOMA
  5. DIOVAN [Concomitant]
     Dosage: 80 MG, UNK

REACTIONS (5)
  - VISUAL IMPAIRMENT [None]
  - HYPERTENSION [None]
  - BLINDNESS [None]
  - NAUSEA [None]
  - VOMITING [None]
